FAERS Safety Report 4399397-0 (Version None)
Quarter: 2004Q3

REPORT INFORMATION
  Report Type: 
  Country: None (occurrence: None)
  Receive Date: 20040712
  Receipt Date: 20040629
  Transmission Date: 20050211
  Serious: Yes (Hospitalization, Other)
  Sender: FDA-Public Use
  Company Number: 2004043493

PATIENT
  Age: 50 Year
  Sex: Female

DRUGS (8)
  1. ZYRTEC [Suspect]
     Indication: ILL-DEFINED DISORDER
     Dosage: UNKNOWN (10 MG, UNKNOWN)(SEE IMAGE)
     Route: 065
     Dates: start: 20030101, end: 20030119
  2. CIPROFLOXACIN [Suspect]
     Indication: ILL-DEFINED DISORDER
     Dosage: UNKNOWN (500 MG, UNKNOWN), UNKNOWN), UNKNOWN (SEE IMAGE)
     Route: 065
     Dates: start: 20030101, end: 20030119
  3. LITHIUM CARBONATE [Suspect]
     Indication: SCHIZOPHRENIA, PARANOID TYPE
     Dosage: 900 MG (450 MG, 2 IN 1 D); ORAL (SEE IMAGE)
     Route: 048
     Dates: start: 19840101
  4. SERETIDE MITE      (FLUTICASONE PROPIONATE SALMETEROL XINAFOATE) [Suspect]
     Indication: INFLUENZA
     Dosage: 2 PUFF(S) (1 PUFF(S), 2 IN 1 D), INHALATION (SEE IMAGE)
     Route: 055
     Dates: start: 20030101, end: 20030117
  5. TIOTIXENE [Concomitant]
  6. BENZATROPINE MESILATE [Concomitant]
  7. RISPERIDONE [Concomitant]
  8. BENAZEPRIL HCL [Concomitant]

REACTIONS (9)
  - DROOLING [None]
  - DRUG INTERACTION [None]
  - DRUG TOXICITY [None]
  - DYSKINESIA [None]
  - INFLUENZA [None]
  - MOVEMENT DISORDER [None]
  - SKIN INFECTION [None]
  - SOMNOLENCE [None]
  - TREMOR [None]
